FAERS Safety Report 9271181 (Version 1)
Quarter: 2013Q2

REPORT INFORMATION
  Report Type: Spontaneous
  Country: JP (occurrence: JP)
  Receive Date: 20130506
  Receipt Date: 20130506
  Transmission Date: 20140414
  Serious: Yes (Death)
  Sender: FDA-Public Use
  Company Number: PHHY2013JP043474

PATIENT
  Age: 85 Year
  Sex: Female

DRUGS (7)
  1. RIVASTIGMIN [Suspect]
     Indication: DEMENTIA ALZHEIMER^S TYPE
     Dosage: 4.5 MG, DAILY
     Route: 062
     Dates: start: 20120817, end: 20120913
  2. RIVASTIGMIN [Suspect]
     Dosage: 9 MG, DAILY
     Route: 062
     Dates: start: 20120914, end: 20121011
  3. RIVASTIGMIN [Suspect]
     Dosage: 13.5 MG, DAILY
     Route: 062
     Dates: start: 20121012, end: 20121108
  4. RIVASTIGMIN [Suspect]
     Dosage: 18 MG, DAILY
     Route: 062
     Dates: start: 20121109
  5. AVAPRO [Concomitant]
  6. CONIEL [Concomitant]
  7. THYRADIN S [Concomitant]

REACTIONS (1)
  - Pneumonia [Fatal]
